FAERS Safety Report 9617145 (Version 2)
Quarter: 2013Q4

REPORT INFORMATION
  Report Type: Report from Study
  Country: BR (occurrence: BR)
  Receive Date: 20131011
  Receipt Date: 20131011
  Transmission Date: 20140711
  Serious: Yes (Hospitalization)
  Sender: FDA-Public Use
  Company Number: BR-ABBVIE-13P-020-1118000-00

PATIENT
  Age: 24 Year
  Sex: Female

DRUGS (6)
  1. RITONAVIR [Suspect]
     Indication: HIV INFECTION
     Route: 048
     Dates: start: 20130520, end: 20130609
  2. RITONAVIR [Suspect]
     Route: 048
     Dates: start: 20130625, end: 20130702
  3. EMTRICITABINE W/TENOFOVIR DISOPROXIL FUMARATE [Concomitant]
     Indication: HIV INFECTION
     Route: 048
     Dates: start: 20130520, end: 20130609
  4. EMTRICITABINE W/TENOFOVIR DISOPROXIL FUMARATE [Concomitant]
     Route: 048
     Dates: start: 20130625, end: 20130702
  5. ATAZANAVIR SULFATE [Concomitant]
     Indication: HIV INFECTION
     Route: 048
     Dates: start: 20130520, end: 20130609
  6. ATAZANAVIR SULFATE [Concomitant]
     Route: 048
     Dates: start: 20130625, end: 20130702

REACTIONS (2)
  - Cerebral toxoplasmosis [Recovered/Resolved]
  - Cerebral toxoplasmosis [Not Recovered/Not Resolved]
